FAERS Safety Report 19583954 (Version 3)
Quarter: 2021Q3

REPORT INFORMATION
  Report Type: Spontaneous
  Country: GB (occurrence: GB)
  Receive Date: 20210720
  Receipt Date: 20210803
  Transmission Date: 20211014
  Serious: Yes (Other)
  Sender: FDA-Public Use
  Company Number: GB-TAKEDA-2021TEU006408

PATIENT
  Age: 71 Year
  Sex: Male

DRUGS (1)
  1. FEBUXOSTAT. [Suspect]
     Active Substance: FEBUXOSTAT
     Indication: GOUT
     Dosage: UNK
     Route: 065
     Dates: end: 202006

REACTIONS (5)
  - Syncope [Unknown]
  - Fatigue [Recovered/Resolved]
  - Hypotension [Unknown]
  - Hypoaesthesia [Not Recovered/Not Resolved]
  - Arthralgia [Recovered/Resolved]
